FAERS Safety Report 6923592-7 (Version None)
Quarter: 2010Q3

REPORT INFORMATION
  Report Type: 
  Country: None (occurrence: None)
  Receive Date: 20100813
  Receipt Date: 20100805
  Transmission Date: 20110219
  Serious: Yes (Other)
  Sender: FDA-Public Use
  Company Number: A0875341A

PATIENT
  Age: 58 Year
  Sex: Female

DRUGS (1)
  1. AVANDIA [Suspect]
     Indication: DIABETES MELLITUS
     Dosage: 4MG PER DAY
     Route: 048
     Dates: start: 20020912, end: 20060801

REACTIONS (4)
  - CARDIAC FAILURE CONGESTIVE [None]
  - HYPERTENSION [None]
  - JOINT SWELLING [None]
  - WEIGHT INCREASED [None]
